FAERS Safety Report 12088592 (Version 1)
Quarter: 2016Q1

REPORT INFORMATION
  Report Type: Spontaneous
  Country: US (occurrence: US)
  Receive Date: 20160218
  Receipt Date: 20160218
  Transmission Date: 20160526
  Serious: Yes (Other)
  Sender: FDA-Public Use
  Company Number: US-ALKEM-001480

PATIENT
  Age: 61 Year
  Sex: Female
  Weight: 80.74 kg

DRUGS (3)
  1. METFORMIN [Concomitant]
     Active Substance: METFORMIN HYDROCHLORIDE
     Indication: TYPE 2 DIABETES MELLITUS
     Dosage: 500 MG TABLET BY MOUTH EVERY MORNING
     Route: 048
  2. AMLODIPINE [Suspect]
     Active Substance: AMLODIPINE BESYLATE
     Indication: HYPERTENSION
     Dosage: EVERY NIGHT, BY MOUTH
     Route: 048
     Dates: start: 20160110
  3. LISINOPRIL. [Suspect]
     Active Substance: LISINOPRIL
     Indication: HYPERTENSION
     Dosage: 20 MG TABLET ONCE A DAY, BY MOUTH
     Route: 048

REACTIONS (7)
  - Headache [Recovered/Resolved]
  - Product substitution issue [Unknown]
  - Cough [Recovered/Resolved]
  - Drug dose omission [Unknown]
  - Blood pressure abnormal [Recovered/Resolved]
  - Malaise [Recovered/Resolved]
  - Drug ineffective [Not Recovered/Not Resolved]

NARRATIVE: CASE EVENT DATE: 20160107
